FAERS Safety Report 8603283-7 (Version None)
Quarter: 2012Q3

REPORT INFORMATION
  Report Type: 
  Country: None (occurrence: None)
  Receive Date: 20120817
  Receipt Date: 20120807
  Transmission Date: 20120928
  Serious: Yes (Hospitalization)
  Sender: FDA-Public Use
  Company Number: FR-BRISTOL-MYERS SQUIBB COMPANY-16846123

PATIENT
  Age: 69 Year
  Sex: Male

DRUGS (13)
  1. ALLOPURINOL NYCOMED [Concomitant]
     Route: 048
  2. TOCO [Concomitant]
  3. POTASSIUM CHLORIDE [Concomitant]
     Dosage: 1 DF: 1 TABLET DAILY
  4. NEORAL [Concomitant]
     Route: 048
  5. IMOVANE [Concomitant]
     Dosage: 1 DF: 1 TABLET
  6. COUMADIN [Suspect]
     Route: 048
     Dates: start: 20120623, end: 20120713
  7. HYDROCORTISONE [Concomitant]
     Route: 048
  8. LASIX [Concomitant]
     Dosage: LASILIX 40 MG, SCORED TABLET
     Route: 048
  9. PREVISCAN [Suspect]
     Indication: DEEP VEIN THROMBOSIS
     Dosage: SCORED TABLET,PREVISCAN 20 MG
     Route: 048
     Dates: start: 20111202, end: 20120111
  10. DAPSONE [Concomitant]
     Route: 048
  11. PREDNISOLONE [Concomitant]
     Route: 048
  12. CACIT D3 [Concomitant]
  13. NEXIUM [Concomitant]
     Dosage: INEXIUM 40 MG
     Route: 048

REACTIONS (1)
  - PYODERMA GANGRENOSUM [None]
